FAERS Safety Report 8200689-5 (Version None)
Quarter: 2012Q1

REPORT INFORMATION
  Report Type: 
  Country: None (occurrence: None)
  Receive Date: 20120307
  Receipt Date: 20120224
  Transmission Date: 20120608
  Serious: Yes (Other)
  Sender: FDA-Public Use
  Company Number: DSJ-2012-03711

PATIENT
  Sex: Female

DRUGS (6)
  1. BENICAR HCT (HYDROCHLOROTHIAZIDE, OLMESARTAN MEDOXOMIL) [Suspect]
     Indication: HYPERTENSION
     Dosage: 20/12.5 MG (1 IN 1 D), PER ORAL
     Route: 048
     Dates: start: 20050101
  2. LEVOTHYROXINE (LEVOTHYROXINE SODIUM) (LEVOTHYROXINE SODIUM) [Concomitant]
  3. CAPTOPRIL [Suspect]
     Indication: HYPERTENSION
     Dosage: PER ORAL
     Route: 048
  4. OLMESARTAN MEDOXOMIL [Suspect]
     Indication: HYPERTENSION
     Dosage: 40 MG (40 MG 1 IN 1 D), PER ORAL
     Route: 048
  5. HYDROXYCHLOROQUINE (HYDROCHLOROQUINE) (HYDROXYCHLOROQUINE) [Suspect]
     Indication: LUPUS VULGARIS
     Dosage: 400 MG,PER ORAL
     Route: 048
     Dates: start: 20100101
  6. CLOXAZOLAM (CLOXAZOLAM) [Concomitant]

REACTIONS (12)
  - NAUSEA [None]
  - ALOPECIA [None]
  - GASTROOESOPHAGEAL REFLUX DISEASE [None]
  - CATARACT [None]
  - VOMITING [None]
  - MALAISE [None]
  - GASTRITIS EROSIVE [None]
  - COUGH [None]
  - SYSTEMIC LUPUS ERYTHEMATOSUS [None]
  - BLOOD PRESSURE SYSTOLIC INCREASED [None]
  - OVERDOSE [None]
  - DRUG INEFFECTIVE [None]
